FAERS Safety Report 9272934 (Version 1)
Quarter: 2013Q2

REPORT INFORMATION
  Report Type: Spontaneous
  Country: US (occurrence: US)
  Receive Date: 20130506
  Receipt Date: 20130506
  Transmission Date: 20140414
  Serious: Yes (Other)
  Sender: FDA-Public Use
  Company Number: US-ASTRAZENECA-2013SE29873

PATIENT
  Sex: Female

DRUGS (4)
  1. FASLODEX [Suspect]
     Indication: BREAST CANCER METASTATIC
     Dosage: 250 MG IN EACH BUTTOCK ONCE (TOTAL 500 MG)
     Route: 030
     Dates: start: 201304, end: 201304
  2. FASLODEX [Suspect]
     Indication: BREAST CANCER METASTATIC
     Route: 050
  3. COUMADIN [Concomitant]
     Indication: ANTICOAGULANT THERAPY
  4. UNKNOWN BLOOD THINNER [Concomitant]
     Indication: ANTICOAGULANT THERAPY
     Route: 058

REACTIONS (1)
  - Injection site haematoma [Unknown]
